FAERS Safety Report 12933992 (Version 1)
Quarter: 2016Q4

REPORT INFORMATION
  Report Type: Spontaneous
  Country: US (occurrence: US)
  Receive Date: 20161111
  Receipt Date: 20161111
  Transmission Date: 20170207
  Serious: Yes (Other)
  Sender: FDA-Public Use
  Company Number: US-SA-2016SA104730

PATIENT
  Sex: Female

DRUGS (1)
  1. LANTUS [Suspect]
     Active Substance: INSULIN GLARGINE
     Indication: DIABETES MELLITUS
     Dosage: FORM: VIAL/SYRINGE
     Route: 065

REACTIONS (7)
  - Thrombosis [Recovering/Resolving]
  - Pain in extremity [Recovering/Resolving]
  - Blood ketone body decreased [Unknown]
  - Blood potassium abnormal [Unknown]
  - Nausea [Unknown]
  - Hypertensive crisis [Recovering/Resolving]
  - Blood sodium abnormal [Unknown]
